FAERS Safety Report 21326140 (Version 1)
Quarter: 2022Q3

REPORT INFORMATION
  Report Type: Spontaneous
  Country: US (occurrence: US)
  Receive Date: 20220913
  Receipt Date: 20220913
  Transmission Date: 20221027
  Serious: Yes (Hospitalization)
  Sender: FDA-Public Use
  Company Number: US-STRIDES ARCOLAB LIMITED-2022SP008599

PATIENT
  Age: 51 Year
  Sex: Male

DRUGS (9)
  1. TACROLIMUS [Suspect]
     Active Substance: TACROLIMUS
     Indication: Heart transplant
     Dosage: 7 MILLIGRAM, EVERY MORNING
     Route: 065
  2. TACROLIMUS [Suspect]
     Active Substance: TACROLIMUS
     Dosage: 6 MILLIGRAM, AT BED TIME (GOAL TROUGH CONCENTRATION OF 8-12 NG/ML)
     Route: 065
  3. TACROLIMUS [Suspect]
     Active Substance: TACROLIMUS
     Dosage: 1.5 MILLIGRAM, BID (DOSE REDUCED)
     Route: 065
  4. PREDNISOLONE [Suspect]
     Active Substance: PREDNISOLONE
     Indication: Heart transplant
     Dosage: 10 MILLIGRAM PER DAY
     Route: 048
  5. VANCOMYCIN [Suspect]
     Active Substance: VANCOMYCIN
     Indication: Pneumonia bacterial
     Dosage: UNK
     Route: 065
  6. COTRIMOXAZOLE [Concomitant]
     Active Substance: SULFAMETHOXAZOLE\TRIMETHOPRIM
     Indication: Antibiotic prophylaxis
     Dosage: UNK (DOSE: 400/80 MG PER DAY)
     Route: 048
  7. VALGANCICLOVIR [Concomitant]
     Active Substance: VALGANCICLOVIR
     Indication: Antiviral prophylaxis
     Dosage: 450 MILLIGRAM, BID (RENALLY ADJUSTED FOR CYTOMEGALOVIRUS PROPHYLAXIS)
     Route: 048
  8. PIPERACILLIN SODIUM\TAZOBACTAM SODIUM [Concomitant]
     Active Substance: PIPERACILLIN SODIUM\TAZOBACTAM SODIUM
     Indication: Pneumonia bacterial
     Dosage: UNK
     Route: 065
  9. VORICONAZOLE [Concomitant]
     Active Substance: VORICONAZOLE
     Indication: Pneumonia bacterial
     Dosage: UNK
     Route: 065

REACTIONS (6)
  - Fungal infection [Recovered/Resolved]
  - Femoral neck fracture [Recovered/Resolved]
  - Osteomyelitis [Recovered/Resolved]
  - Arthritis bacterial [Recovered/Resolved]
  - Brain abscess [Unknown]
  - Off label use [Unknown]
